FAERS Safety Report 4737957-5 (Version None)
Quarter: 2005Q3

REPORT INFORMATION
  Report Type: 
  Country: None (occurrence: None)
  Receive Date: 20050805
  Receipt Date: 20050805
  Transmission Date: 20060218
  Serious: Yes (Other)
  Sender: FDA-Public Use
  Company Number: CTU 255538

PATIENT
  Age: 41 Year
  Sex: Male
  Weight: 103.8737 kg

DRUGS (1)
  1. OXYCODONE ER 40 MG TAB ENDO [Suspect]
     Indication: BACK PAIN
     Dosage: 40 MG ONE PO QID
     Route: 048

REACTIONS (4)
  - ABDOMINAL PAIN UPPER [None]
  - NAUSEA [None]
  - PHARMACEUTICAL PRODUCT COMPLAINT [None]
  - STOMACH DISCOMFORT [None]
